FAERS Safety Report 4870908-1 (Version None)
Quarter: 2005Q4

REPORT INFORMATION
  Report Type: 
  Country: None (occurrence: None)
  Receive Date: 20051229
  Receipt Date: 20050826
  Transmission Date: 20060501
  Serious: Yes (Death, Hospitalization)
  Sender: FDA-Public Use
  Company Number: 18142

PATIENT
  Age: 68 Year
  Sex: Female

DRUGS (5)
  1. IMIQUIMOD (IMIQUIMOD) [Suspect]
     Indication: SKIN PAPILLOMA
     Dosage: (1 UNSPEC., 3 IN 1 WEEKS(S)) TOPICAL
     Route: 061
     Dates: start: 20010618
  2. PREDNISOLONE [Concomitant]
  3. AZATHIOPRINE [Concomitant]
  4. ATORVASTATIN CALCIUM [Concomitant]
  5. CYCLOSPORINE [Concomitant]

REACTIONS (3)
  - ARM AMPUTATION [None]
  - PERIPHERAL EMBOLISM [None]
  - SEPSIS [None]
